FAERS Safety Report 6524592-1 (Version None)
Quarter: 2010Q1

REPORT INFORMATION
  Report Type: 
  Country: None (occurrence: None)
  Receive Date: 20100104
  Receipt Date: 20091222
  Transmission Date: 20100710
  Serious: Yes (Other)
  Sender: FDA-Public Use
  Company Number: PHHY2009AU56324

PATIENT
  Sex: Male

DRUGS (12)
  1. CLOZARIL [Suspect]
     Indication: SCHIZOPHRENIA
     Dosage: 200 MG
     Route: 048
     Dates: start: 19960101
  2. CLOZARIL [Suspect]
     Dosage: 200 MG
     Route: 048
     Dates: start: 20020101
  3. CLOZARIL [Suspect]
     Dosage: 250 MG
     Route: 048
     Dates: start: 20050101
  4. CLOZARIL [Suspect]
     Dosage: 300 MG
     Route: 048
     Dates: start: 20060101
  5. CLOZARIL [Suspect]
     Dosage: 400 MG
     Route: 048
     Dates: start: 20070101
  6. CLOZARIL [Suspect]
     Dosage: 350 GM
     Route: 048
     Dates: start: 20090217
  7. OLANZAPINE [Concomitant]
     Dosage: 5 MG
  8. MICARDIS [Concomitant]
     Dosage: 80 MG/DAY
  9. PRAVASTATIN [Concomitant]
     Dosage: 20 MG/DAY
  10. SOMAC [Concomitant]
     Dosage: 20 MG
  11. ENOXANT [Concomitant]
     Dosage: 5 MG
  12. LITHIUM CARBONATE [Concomitant]
     Dosage: UNK
     Dates: start: 20020101, end: 20050101

REACTIONS (3)
  - ANAEMIA [None]
  - ANTIPSYCHOTIC DRUG LEVEL INCREASED [None]
  - RENAL IMPAIRMENT [None]
